FAERS Safety Report 9325410 (Version 1)
Quarter: 2013Q2

REPORT INFORMATION
  Report Type: Spontaneous
  Country: ES (occurrence: ES)
  Receive Date: 20130604
  Receipt Date: 20130604
  Transmission Date: 20140414
  Serious: Yes (Hospitalization)
  Sender: FDA-Public Use
  Company Number: ES-PFIZER INC-2013167505

PATIENT
  Age: 64 Year
  Sex: Male
  Weight: 72 kg

DRUGS (7)
  1. TRANGOREX [Suspect]
     Indication: ATRIAL FIBRILLATION
     Dosage: 200 MG, 2X/DAY
     Route: 065
  2. IBUPROFENO [Interacting]
     Dosage: 400 MG, 2X/DAY
     Route: 065
     Dates: end: 20130506
  3. XARELTO [Interacting]
     Indication: ATRIAL FIBRILLATION
     Dosage: 20 MG/ 24 H
     Route: 065
     Dates: start: 20130114, end: 20130506
  4. URBASON [Concomitant]
     Dosage: UNK
     Dates: end: 201304
  5. FUROSEMIDA [Concomitant]
     Dosage: UNK
     Dates: end: 201304
  6. HYDROXYCHLOROQUINE [Concomitant]
     Dosage: UNK
  7. OMEPRAZOLE [Concomitant]
     Dosage: UNK

REACTIONS (3)
  - Drug interaction [Unknown]
  - Gastrointestinal haemorrhage [Recovered/Resolved]
  - Haematemesis [Recovered/Resolved]
